FAERS Safety Report 10956717 (Version 1)
Quarter: 2015Q1

REPORT INFORMATION
  Report Type: Spontaneous
  Country: US (occurrence: US)
  Receive Date: 20150326
  Receipt Date: 20150326
  Transmission Date: 20150721
  Serious: No
  Sender: FDA-Public Use
  Company Number: US-MYLANLABS-2014S1004105

PATIENT
  Age: 73 Year
  Sex: Female
  Weight: 57.15 kg

DRUGS (3)
  1. LORAZEPAM. [Concomitant]
     Active Substance: LORAZEPAM
     Indication: ANXIETY
     Dosage: 2 MG,QID
     Route: 048
     Dates: start: 2009
  2. EMSAM [Suspect]
     Active Substance: SELEGILINE
     Indication: DEPRESSION
     Dosage: 6 MG,QD
     Route: 062
     Dates: start: 20140114, end: 20140401
  3. VAGIFEM [Concomitant]
     Active Substance: ESTRADIOL
     Dosage: 10 MG,UNK

REACTIONS (6)
  - Application site pruritus [Recovered/Resolved]
  - Application site rash [Recovered/Resolved]
  - Application site urticaria [Recovered/Resolved]
  - Application site nodule [Not Recovered/Not Resolved]
  - Application site irritation [Recovered/Resolved]
  - Application site vesicles [Recovered/Resolved]

NARRATIVE: CASE EVENT DATE: 201401
